FAERS Safety Report 7078553-7 (Version None)
Quarter: 2010Q4

REPORT INFORMATION
  Report Type: 
  Country: None (occurrence: None)
  Receive Date: 20101102
  Receipt Date: 20101018
  Transmission Date: 20110411
  Serious: Yes (Death)
  Sender: FDA-Public Use
  Company Number: US-AMGEN-USASP2010000674

PATIENT

DRUGS (3)
  1. NPLATE [Suspect]
     Indication: IDIOPATHIC THROMBOCYTOPENIC PURPURA
     Dates: start: 20081223, end: 20081230
  2. CORTICOSTEROIDS [Concomitant]
  3. DANAZOL [Concomitant]
     Dosage: UNK

REACTIONS (1)
  - CEREBRAL HAEMORRHAGE [None]
